FAERS Safety Report 21135930 (Version 1)
Quarter: 2022Q3

REPORT INFORMATION
  Report Type: Report from Study
  Country: ZA (occurrence: ZA)
  Receive Date: 20220727
  Receipt Date: 20220727
  Transmission Date: 20221026
  Serious: Yes (Other)
  Sender: FDA-Public Use
  Company Number: ZA-NOVARTISPH-NVSC2022ZA106710

PATIENT
  Age: 80 Year
  Sex: Female
  Weight: 55 kg

DRUGS (3)
  1. BROLUCIZUMAB [Suspect]
     Active Substance: BROLUCIZUMAB
     Indication: Neovascular age-related macular degeneration
     Dosage: 27.6 MG, QMO (27.6MG IN 0.23ML)
     Route: 047
     Dates: start: 20220221
  2. BROLUCIZUMAB [Suspect]
     Active Substance: BROLUCIZUMAB
     Dosage: UNK (RIGHT EYE)
     Route: 047
     Dates: start: 20220404
  3. BROLUCIZUMAB [Suspect]
     Active Substance: BROLUCIZUMAB
     Dosage: 27.6 MG
     Route: 047
     Dates: start: 20220505

REACTIONS (10)
  - Iridocyclitis [Recovered/Resolved]
  - Ocular hyperaemia [Recovered/Resolved]
  - Vitreous floaters [Recovered/Resolved]
  - Vitreal cells [Recovered/Resolved]
  - Anterior chamber cell [Recovered/Resolved]
  - Papilloedema [Recovered/Resolved]
  - Vitritis [Recovered/Resolved]
  - Retinitis [Recovered/Resolved]
  - Choroiditis [Recovered/Resolved]
  - Vitreous haze [Recovered/Resolved]

NARRATIVE: CASE EVENT DATE: 20220505
